FAERS Safety Report 4584508-4 (Version None)
Quarter: 2005Q1

REPORT INFORMATION
  Report Type: 
  Country: None (occurrence: None)
  Receive Date: 20050125
  Receipt Date: 20041108
  Transmission Date: 20050727
  Serious: No
  Sender: FDA-Public Use
  Company Number: USA041183447

PATIENT
  Age: 83 Year
  Sex: Female
  Weight: 51 kg

DRUGS (9)
  1. FORTEO [Suspect]
     Indication: BONE SCAN ABNORMAL
     Dosage: 20 UG/1 DAY
     Dates: start: 20041004
  2. PLENDIL [Concomitant]
  3. DIOVAN [Concomitant]
  4. LEVOXYL [Concomitant]
  5. MULTI-VITAMIN [Concomitant]
  6. CALCIUM GLUCONATE [Concomitant]
  7. GLUCOSAMINE SULFATE [Concomitant]
  8. VITAMIN E [Concomitant]
  9. VITAMIN C [Concomitant]

REACTIONS (3)
  - DECREASED APPETITE [None]
  - NAUSEA [None]
  - STOMACH DISCOMFORT [None]
